FAERS Safety Report 18950294 (Version 1)
Quarter: 2021Q1

REPORT INFORMATION
  Report Type: Spontaneous
  Country: US (occurrence: US)
  Receive Date: 20210228
  Receipt Date: 20210228
  Transmission Date: 20210420
  Serious: No
  Sender: FDA-Public Use
  Company Number: US-ROCHE-2719448

PATIENT
  Sex: Female

DRUGS (3)
  1. XOLAIR [Suspect]
     Active Substance: OMALIZUMAB
  2. XOLAIR [Suspect]
     Active Substance: OMALIZUMAB
     Indication: ASTHMA
     Dosage: 150 MG/ML, ONGOING: YES
     Route: 058
     Dates: start: 20200430
  3. XOLAIR [Suspect]
     Active Substance: OMALIZUMAB

REACTIONS (5)
  - Urticaria [Unknown]
  - Vision blurred [Unknown]
  - Swelling [Unknown]
  - Chest discomfort [Unknown]
  - Dysgeusia [Unknown]
